FAERS Safety Report 8069640 (Version 3)
Quarter: 2013Q3

REPORT INFORMATION
  Report Type: Spontaneous
  Country: FR (occurrence: FR)
  Receive Date: 20110804
  Receipt Date: 20130705
  Transmission Date: 20140515
  Serious: Yes (Hospitalization, Other)
  Sender: FDA-Public Use
  Company Number: FR-JNJFOC-20110800504

PATIENT
  Age: 30 Year
  Sex: Female
  Weight: 73 kg

DRUGS (8)
  1. INFLIXIMAB, RECOMBINANT [Suspect]
     Indication: COLITIS ULCERATIVE
     Dosage: USED UNTIL 26 WEEKS OF AMENORRHEA
     Route: 042
     Dates: end: 20110404
  2. INFLIXIMAB, RECOMBINANT [Suspect]
     Indication: COLITIS ULCERATIVE
     Route: 042
     Dates: start: 2009
  3. ATARAX [Suspect]
     Indication: PRURITUS
     Dosage: FROM 32 TO 34.5 WEEKS OF AMENORRHEA
     Route: 065
  4. POLARAMIN [Suspect]
     Indication: PRURITUS
     Dosage: FROM 32 TO 34.5 WEEKS OF AMENORRHEA
     Route: 065
  5. OROKEN [Suspect]
     Indication: ESCHERICHIA INFECTION
     Dosage: AT 34 WEEKS OF AMENORRHEA
     Route: 065
  6. FLAGYL [Suspect]
     Indication: ESCHERICHIA INFECTION
     Dosage: AT 34 WEEKS OF AMENORRHEA
     Route: 065
  7. TRACTOCILE (ATOSIBAN) [Suspect]
     Indication: THREATENED LABOUR
     Dosage: AT 33 WEEKS OF AMENORRHEA
     Route: 065
  8. CLOMID [Suspect]
     Indication: PRODUCT USED FOR UNKNOWN INDICATION
     Route: 065

REACTIONS (7)
  - Pre-eclampsia [Unknown]
  - Gestational hypertension [Unknown]
  - Premature delivery [Recovered/Resolved]
  - HELLP syndrome [Unknown]
  - Exposure during pregnancy [Recovered/Resolved]
  - Renal failure acute [Unknown]
  - Pruritus [Unknown]
